FAERS Safety Report 23450941 (Version 6)
Quarter: 2024Q1

REPORT INFORMATION
  Report Type: Spontaneous
  Country: US (occurrence: US)
  Receive Date: 20240129
  Receipt Date: 20240228
  Transmission Date: 20240410
  Serious: Yes (Other)
  Sender: FDA-Public Use
  Company Number: US-PFIZER INC-202400011743

PATIENT
  Age: 16 Month
  Sex: Male
  Weight: 11.1 kg

DRUGS (1)
  1. GENOTROPIN [Suspect]
     Active Substance: SOMATROPIN
     Dosage: 0.4 MG, DAILY
     Dates: start: 20240111

REACTIONS (3)
  - Drug administered in wrong device [Unknown]
  - Device malfunction [Unknown]
  - Device deployment issue [Unknown]

NARRATIVE: CASE EVENT DATE: 20240101
